FAERS Safety Report 5424171-3 (Version None)
Quarter: 2007Q3

REPORT INFORMATION
  Report Type: 
  Country: None (occurrence: None)
  Receive Date: 20070726
  Receipt Date: 20070524
  Transmission Date: 20080115
  Serious: Yes (Other)
  Sender: FDA-Public Use
  Company Number: 37503

PATIENT
  Age: 63 Year
  Sex: Male
  Weight: 84.369 kg

DRUGS (6)
  1. CARBOPLATIN [Suspect]
     Indication: BLADDER CANCER
  2. CISPLATIN [Suspect]
  3. VITAMINS [Concomitant]
  4. ASPIRIN [Concomitant]
  5. NIACIN [Concomitant]
  6. XANAX [Concomitant]

REACTIONS (1)
  - DRUG INEFFECTIVE [None]
